FAERS Safety Report 12069013 (Version 2)
Quarter: 2016Q2

REPORT INFORMATION
  Report Type: Spontaneous
  Country: US (occurrence: US)
  Receive Date: 20160211
  Receipt Date: 20160430
  Transmission Date: 20160815
  Serious: No
  Sender: FDA-Public Use
  Company Number: US-ASTRAZENECA-2016SE12006

PATIENT
  Age: 23522 Day
  Sex: Male
  Weight: 83.5 kg

DRUGS (14)
  1. ASPIRIN. [Concomitant]
     Active Substance: ASPIRIN
  2. BYDUREON [Suspect]
     Active Substance: EXENATIDE
     Indication: TYPE 2 DIABETES MELLITUS
     Route: 058
     Dates: start: 20160119, end: 20160122
  3. TIMOLOL MALEATE. [Concomitant]
     Active Substance: TIMOLOL MALEATE
  4. JANUMET [Concomitant]
     Active Substance: METFORMIN HYDROCHLORIDE\SITAGLIPTIN PHOSPHATE
  5. FISH OIL [Concomitant]
     Active Substance: FISH OIL
  6. MULTIVITAMINS [Concomitant]
     Active Substance: VITAMINS
  7. VITAMIN C [Concomitant]
     Active Substance: ASCORBIC ACID
  8. IBUPROFEN. [Concomitant]
     Active Substance: IBUPROFEN
  9. LISINOPRIL. [Suspect]
     Active Substance: LISINOPRIL
     Route: 048
  10. OMEPRAZOLE. [Suspect]
     Active Substance: OMEPRAZOLE
     Route: 048
  11. SAW PALMETTO [Concomitant]
     Active Substance: SAW PALMETTO
  12. ACIDOPHILUS [Concomitant]
     Active Substance: LACTOBACILLUS ACIDOPHILUS
  13. LIPITOR [Concomitant]
     Active Substance: ATORVASTATIN CALCIUM
  14. GLIPIZIDE. [Concomitant]
     Active Substance: GLIPIZIDE

REACTIONS (2)
  - Rash pruritic [Unknown]
  - Abdominal discomfort [Unknown]

NARRATIVE: CASE EVENT DATE: 20160122
